FAERS Safety Report 14994723 (Version 1)
Quarter: 2018Q2

REPORT INFORMATION
  Report Type: Spontaneous
  Country: DE (occurrence: DE)
  Receive Date: 20180611
  Receipt Date: 20180611
  Transmission Date: 20180711
  Serious: Yes (Hospitalization, Other)
  Sender: FDA-Public Use
  Company Number: DE-WEST-WARD PHARMACEUTICALS CORP.-DE-H14001-18-04689

PATIENT
  Age: 42 Year
  Sex: Male
  Weight: 82 kg

DRUGS (12)
  1. ALOXI [Concomitant]
     Active Substance: PALONOSETRON HYDROCHLORIDE
     Indication: PREMEDICATION
     Dosage: ON D1 AND D8
     Route: 042
  2. LAFOL [Concomitant]
     Indication: PREMEDICATION
     Route: 048
     Dates: start: 20140716
  3. VERGENTAN [Concomitant]
     Active Substance: ALIZAPRIDE HYDROCHLORIDE
     Indication: PREMEDICATION
     Dosage: ON D1 AND D8.
     Route: 042
     Dates: start: 20140813, end: 20141217
  4. FILGRASTIM [Concomitant]
     Active Substance: FILGRASTIM
     Dosage: DAY4 UNTIL DAY10 ()
     Route: 058
     Dates: start: 20140906
  5. BONDRONAT [Concomitant]
     Active Substance: IBANDRONIC ACID
     Indication: METASTASES TO BONE
     Route: 042
     Dates: start: 20140620
  6. DEXAMETHASON [Concomitant]
     Active Substance: DEXAMETHASONE
     Indication: PREMEDICATION
     Dosage: ON D1 AND D8.
     Route: 042
     Dates: start: 20140813, end: 20141217
  7. CISPLATIN. [Suspect]
     Active Substance: CISPLATIN
     Indication: LUNG CANCER METASTATIC
     Dosage: DAY1, DAY8.
     Route: 042
     Dates: start: 20140813, end: 20141203
  8. ALIMTA [Suspect]
     Active Substance: PEMETREXED DISODIUM
     Indication: LUNG CANCER METASTATIC
     Route: 042
     Dates: start: 20140813, end: 20141126
  9. VITAMIN B12 [Concomitant]
     Active Substance: CYANOCOBALAMIN
     Indication: PREMEDICATION
     Dosage: ()
     Route: 042
     Dates: start: 20140716
  10. GRANISETRON [Concomitant]
     Active Substance: GRANISETRON
     Indication: PRODUCT USED FOR UNKNOWN INDICATION
     Dosage: ON D1 AND D8.
     Route: 042
     Dates: start: 20140813, end: 20141126
  11. BEVACIZUMAB. [Suspect]
     Active Substance: BEVACIZUMAB
     Indication: LUNG CANCER METASTATIC
     Dosage: 640 MG
     Route: 042
     Dates: start: 20140903
  12. FILGRASTIM [Concomitant]
     Active Substance: FILGRASTIM
     Indication: PROPHYLAXIS
     Dosage: DAY9 UNTIL DAY15 ()
     Route: 058
     Dates: start: 20140821, end: 20140827

REACTIONS (4)
  - Leukopenia [Not Recovered/Not Resolved]
  - Metastases to spine [Not Recovered/Not Resolved]
  - Pulmonary embolism [Recovered/Resolved]
  - Hypertension [Not Recovered/Not Resolved]

NARRATIVE: CASE EVENT DATE: 20141008
